FAERS Safety Report 8803530 (Version 2)
Quarter: 2012Q4

REPORT INFORMATION
  Report Type: 
  Country: US (occurrence: US)
  Receive Date: 20120924
  Receipt Date: 20121010
  Transmission Date: 20130627
  Serious: No
  Sender: FDA-Public Use
  Company Number: US-009507513-1208USA002385

PATIENT
  Sex: Female
  Weight: 84.35 kg

DRUGS (9)
  1. VICTRELIS [Suspect]
     Indication: HEPATITIS C
     Dosage: 800 mg, tid, 4 capsules taken with food
     Route: 048
     Dates: start: 20120516
  2. REBETOL [Suspect]
     Dosage: UNK
  3. PEGASYS [Concomitant]
     Dosage: UNK
  4. METHADONE HCL [Concomitant]
     Dosage: solution, 10 mg/5 ml
  5. PROVENTIL [Concomitant]
  6. CLONAZEPAM [Concomitant]
     Dosage: UNK
  7. CLONIDINE [Concomitant]
     Dosage: UNK
  8. HYDROCORTISONE [Concomitant]
     Dosage: 1% PLUS
  9. TYLENOL [Concomitant]
     Dosage: 650 mg, q8h

REACTIONS (3)
  - Hallucinations, mixed [Unknown]
  - Poor quality sleep [Unknown]
  - Anaemia [Unknown]
